FAERS Safety Report 4738841-3 (Version None)
Quarter: 2005Q3

REPORT INFORMATION
  Report Type: 
  Country: None (occurrence: None)
  Receive Date: 20050729
  Receipt Date: 20050415
  Transmission Date: 20060218
  Serious: Yes (Life-Threatening)
  Sender: FDA-Public Use
  Company Number: US-2005-005769

PATIENT
  Age: 41 Year
  Sex: Female
  Weight: 65.8 kg

DRUGS (1)
  1. MAGNEVIST [Suspect]
     Indication: NUCLEAR MAGNETIC RESONANCE IMAGING BRAIN
     Dosage: 15 ML, 1 DOSE, INTRAVENOUS
     Route: 042
     Dates: start: 20050414, end: 20050414

REACTIONS (3)
  - COUGH [None]
  - ERYTHEMA [None]
  - WHEEZING [None]
